FAERS Safety Report 7351216-6 (Version None)
Quarter: 2011Q1

REPORT INFORMATION
  Report Type: 
  Country: None (occurrence: None)
  Receive Date: 20110314
  Receipt Date: 20110304
  Transmission Date: 20110831
  Serious: Yes (Hospitalization, Other)
  Sender: FDA-Public Use
  Company Number: FR-PFIZER INC-2010088536

PATIENT
  Age: 74 Year
  Sex: Female
  Weight: 62 kg

DRUGS (5)
  1. DROPERIDOL [Suspect]
     Indication: GENERAL ANAESTHESIA
     Route: 042
  2. HYDROXYZINE HCL [Suspect]
     Indication: PREMEDICATION
     Dosage: 100 MG, AT 8 PM ONE NIGHT BEFORE SURGERY
     Route: 048
  3. MIDAZOLAM [Suspect]
     Indication: GENERAL ANAESTHESIA
     Dosage: 5 MG, UNK
     Route: 042
  4. SUFENTANIL [Suspect]
     Indication: GENERAL ANAESTHESIA
     Dosage: 20 UG, UNK
     Route: 042
  5. PROPOFOL [Suspect]
     Indication: GENERAL ANAESTHESIA
     Dosage: 100 MG, UNK
     Route: 042

REACTIONS (1)
  - RESTLESS LEGS SYNDROME [None]
